FAERS Safety Report 9421265 (Version 2)
Quarter: 2014Q1

REPORT INFORMATION
  Report Type: Spontaneous
  Country: US (occurrence: US)
  Receive Date: 20130725
  Receipt Date: 20140103
  Transmission Date: 20141002
  Serious: Yes (Death, Hospitalization, Other)
  Sender: FDA-Public Use
  Company Number: US-B.I. PHARMACEUTICALS,INC./RIDGEFIELD-2013-BI-21805BP

PATIENT
  Age: 78 Year
  Sex: Female
  Weight: 61.23 kg

DRUGS (1)
  1. PRADAXA [Suspect]
     Indication: ANTICOAGULANT THERAPY
     Dosage: 300 MG
     Dates: start: 20110917, end: 20130124

REACTIONS (6)
  - Gastrointestinal haemorrhage [Fatal]
  - Intestinal ischaemia [Fatal]
  - Sepsis [Fatal]
  - Respiratory failure [Fatal]
  - Clonic convulsion [Unknown]
  - Tonic convulsion [Unknown]
